FAERS Safety Report 4379395-3 (Version None)
Quarter: 2004Q2

REPORT INFORMATION
  Report Type: 
  Country: None (occurrence: None)
  Receive Date: 20040617
  Receipt Date: 20040219
  Transmission Date: 20050107
  Serious: Yes (Other)
  Sender: FDA-Public Use
  Company Number: JP-JNJFOC-20040300408

PATIENT
  Age: 75 Year
  Sex: Female

DRUGS (9)
  1. REMICADE [Suspect]
     Route: 042
  2. REMICADE [Suspect]
     Route: 042
  3. REMICADE [Suspect]
     Indication: RHEUMATOID ARTHRITIS
     Route: 042
  4. METHOTREXATE [Concomitant]
  5. FOLIC ACID [Concomitant]
  6. MELOXICAM [Concomitant]
  7. MIZORIBINE [Concomitant]
  8. PREDNISOLONE [Concomitant]
  9. SULFASALAZINE [Concomitant]

REACTIONS (2)
  - MALIGNANT PLEURAL EFFUSION [None]
  - PLEURISY [None]
